FAERS Safety Report 16328143 (Version 10)
Quarter: 2020Q4

REPORT INFORMATION
  Report Type: Spontaneous
  Country: DE (occurrence: DE)
  Receive Date: 20190518
  Receipt Date: 20201123
  Transmission Date: 20210113
  Serious: Yes (Hospitalization)
  Sender: FDA-Public Use
  Company Number: DE-AUROBINDO-AUR-APL-2019-027522

PATIENT
  Age: 41 Year
  Sex: Female
  Weight: 116 kg

DRUGS (14)
  1. ARIPIPRAZOLE. [Suspect]
     Active Substance: ARIPIPRAZOLE
     Indication: PRODUCT USED FOR UNKNOWN INDICATION
     Dosage: 10 MILLIGRAM, ONCE A DAY
     Route: 065
  2. ARIPIPRAZOLE. [Suspect]
     Active Substance: ARIPIPRAZOLE
     Dosage: 20 MILLIGRAM, ONCE A DAY (1-0-0)
     Route: 065
  3. ARIPIPRAZOLE. [Suspect]
     Active Substance: ARIPIPRAZOLE
     Dosage: 15 MILLIGRAM, ONCE A DAY
     Route: 065
     Dates: start: 20190514
  4. ARIPIPRAZOLE. [Suspect]
     Active Substance: ARIPIPRAZOLE
     Dosage: 10 MILLIGRAM, ONCE A DAY (1-0-0)
     Route: 065
  5. OCREVUS [Suspect]
     Active Substance: OCRELIZUMAB
     Dosage: UNK, 4TH INFUSION
     Route: 042
     Dates: start: 202003
  6. OCREVUS [Suspect]
     Active Substance: OCRELIZUMAB
     Indication: RELAPSING-REMITTING MULTIPLE SCLEROSIS
     Dosage: 300 MILLIGRAM (SECOND INFUSION RECEIVED ON ON 24/JUL/2018)
     Route: 042
     Dates: start: 20180712
  7. SODIUM PROPIONATE [Suspect]
     Active Substance: SODIUM PROPIONATE
     Indication: PRODUCT USED FOR UNKNOWN INDICATION
     Dosage: 1000 MILLIGRAM, ONCE A DAY
     Route: 065
     Dates: start: 20190610
  8. SINUPRET FORTE [Suspect]
     Active Substance: DIETARY SUPPLEMENT\HERBALS
     Indication: NASAL CRUSTING
     Dosage: UNK
     Route: 048
  9. ARIPIPRAZOLE. [Suspect]
     Active Substance: ARIPIPRAZOLE
     Dosage: 15 MILLIGRAM, ONCE A DAY (1-0-0)
     Route: 065
  10. SODIUM PROPIONATE [Suspect]
     Active Substance: SODIUM PROPIONATE
     Dosage: 500 MILLIGRAM, TWO TIMES A DAY (0.5 DAY) 1-0-1
     Route: 065
     Dates: start: 20190610
  11. CORTISONE [Suspect]
     Active Substance: CORTISONE
     Indication: PRODUCT USED FOR UNKNOWN INDICATION
     Dosage: UNK
     Route: 065
  12. NATALIZUMAB [Concomitant]
     Active Substance: NATALIZUMAB
     Indication: PRODUCT USED FOR UNKNOWN INDICATION
     Dosage: UNK
     Route: 065
  13. OCREVUS [Suspect]
     Active Substance: OCRELIZUMAB
     Dosage: 600 MILLIGRAM,208 DAY
     Route: 042
     Dates: start: 20190205
  14. OCREVUS [Suspect]
     Active Substance: OCRELIZUMAB
     Dosage: 600 MILLIGRAM
     Route: 042
     Dates: start: 20200902

REACTIONS (50)
  - Body temperature increased [Recovered/Resolved]
  - Fatigue [Recovered/Resolved]
  - Hypoaesthesia [Recovered/Resolved]
  - Acne [Recovering/Resolving]
  - Malaise [Recovered/Resolved]
  - Headache [Recovered/Resolved]
  - Pruritus [Recovered/Resolved]
  - Oestradiol increased [Unknown]
  - Myalgia [Recovered/Resolved]
  - Heart rate increased [Recovered/Resolved]
  - Erythema [Recovered/Resolved]
  - Panic attack [Recovered/Resolved]
  - Multiple sclerosis relapse [Recovered/Resolved]
  - Dyspnoea [Recovered/Resolved]
  - Product use issue [Unknown]
  - Nasopharyngitis [Recovered/Resolved]
  - Drug level increased [Recovered/Resolved]
  - Muscle tightness [Recovered/Resolved]
  - Diarrhoea [Recovered/Resolved]
  - Angular cheilitis [Recovered/Resolved]
  - Vaginal haemorrhage [Recovered/Resolved]
  - Pain in extremity [Recovered/Resolved]
  - Skin disorder [Recovering/Resolving]
  - Lymphadenopathy [Recovered/Resolved]
  - Fear of disease [Not Recovered/Not Resolved]
  - Urine analysis abnormal [Recovered/Resolved]
  - Pain [Recovering/Resolving]
  - Dry eye [Recovering/Resolving]
  - Exostosis [Not Recovered/Not Resolved]
  - Progesterone decreased [Unknown]
  - Onychomycosis [Not Recovered/Not Resolved]
  - Insomnia [Recovered/Resolved]
  - Vitamin D decreased [Recovered/Resolved]
  - Vertigo positional [Recovered/Resolved]
  - Intervertebral disc protrusion [Not Recovered/Not Resolved]
  - Red blood cell sedimentation rate increased [Recovered/Resolved]
  - Blood oestrogen increased [Unknown]
  - Breath sounds abnormal [Not Recovered/Not Resolved]
  - Weight increased [Recovered/Resolved]
  - Autoinflammatory disease [Recovered/Resolved]
  - Joint dislocation [Recovered/Resolved]
  - Listless [Recovered/Resolved]
  - Memory impairment [Recovering/Resolving]
  - Nasal dryness [Recovered/Resolved]
  - Menstruation irregular [Recovered/Resolved]
  - Tendon disorder [Unknown]
  - Influenza [Recovered/Resolved]
  - Paraesthesia [Recovered/Resolved]
  - Mood swings [Recovered/Resolved]
  - Inappropriate schedule of product administration [Unknown]

NARRATIVE: CASE EVENT DATE: 20180712
